FAERS Safety Report 25705627 (Version 1)
Quarter: 2025Q3

REPORT INFORMATION
  Report Type: Spontaneous
  Country: GB (occurrence: GB)
  Receive Date: 20250820
  Receipt Date: 20250820
  Transmission Date: 20251020
  Serious: Yes (Disabling)
  Sender: AUROBINDO
  Company Number: GB-MHRA-MED-202508081638060700-RBYHF

PATIENT
  Age: 21 Year
  Sex: Female

DRUGS (2)
  1. LAMOTRIGINE [Suspect]
     Active Substance: LAMOTRIGINE
     Indication: Bipolar disorder
     Route: 065
     Dates: start: 20250802
  2. FLUOXETINE [Concomitant]
     Active Substance: FLUOXETINE HYDROCHLORIDE
     Indication: Adverse drug reaction
     Route: 065
     Dates: start: 20250618

REACTIONS (2)
  - Dysuria [Not Recovered/Not Resolved]
  - Vaginal infection [Not Recovered/Not Resolved]

NARRATIVE: CASE EVENT DATE: 20250803
